FAERS Safety Report 11450326 (Version 1)
Quarter: 2015Q3

REPORT INFORMATION
  Report Type: Spontaneous
  Country: US (occurrence: US)
  Receive Date: 20150903
  Receipt Date: 20150903
  Transmission Date: 20151125
  Serious: No
  Sender: FDA-Public Use
  Company Number: US-ROCHE-1080064

PATIENT
  Sex: Male

DRUGS (1)
  1. PEGASYS [Suspect]
     Active Substance: PEGINTERFERON ALFA-2A
     Indication: HEPATITIS C
     Route: 065

REACTIONS (6)
  - Diarrhoea [Unknown]
  - Asthenia [Unknown]
  - Wrong technique in product usage process [Unknown]
  - Chills [Unknown]
  - Nausea [Unknown]
  - Dyskinesia [Unknown]
